FAERS Safety Report 11222688 (Version 2)
Quarter: 2018Q1

REPORT INFORMATION
  Report Type: Report from Study
  Country: AR (occurrence: AR)
  Receive Date: 20150626
  Receipt Date: 20180314
  Transmission Date: 20180508
  Serious: Yes (Other)
  Sender: FDA-Public Use
  Company Number: PHHY2015AR075613

PATIENT
  Sex: Female

DRUGS (4)
  1. LIPIBEC [Concomitant]
     Indication: BLOOD CHOLESTEROL ABNORMAL
     Route: 065
  2. RASILEZ [Suspect]
     Active Substance: ALISKIREN
     Indication: HYPERTENSION
     Dosage: 1 DF, QD
     Route: 048
  3. RASILEZ [Suspect]
     Active Substance: ALISKIREN
     Dosage: 2 DF, QD
     Route: 048
  4. RASILEZ [Suspect]
     Active Substance: ALISKIREN
     Dosage: 300 MG, QD
     Route: 065

REACTIONS (3)
  - Diabetes mellitus [Not Recovered/Not Resolved]
  - Blood glucose increased [Unknown]
  - Blood pressure increased [Recovering/Resolving]
